FAERS Safety Report 18643273 (Version 6)
Quarter: 2021Q3

REPORT INFORMATION
  Report Type: Spontaneous
  Country: US (occurrence: US)
  Receive Date: 20201221
  Receipt Date: 20210811
  Transmission Date: 20211014
  Serious: No
  Sender: FDA-Public Use
  Company Number: US-PFIZER INC-2020501247

PATIENT
  Age: 51 Year
  Sex: Female

DRUGS (6)
  1. IBRANCE [Suspect]
     Active Substance: PALBOCICLIB
     Dosage: 125 MG
     Dates: start: 20201202
  2. IBRANCE [Suspect]
     Active Substance: PALBOCICLIB
     Dosage: 125 MG, UNK
     Dates: start: 20201115
  3. IBRANCE [Suspect]
     Active Substance: PALBOCICLIB
     Dosage: 125 MG, 1X/DAY
     Dates: start: 20201120
  4. IBRANCE [Suspect]
     Active Substance: PALBOCICLIB
     Dosage: 125 MG, UNK
     Dates: start: 20210104
  5. IBRANCE [Suspect]
     Active Substance: PALBOCICLIB
     Dosage: 125 MG
     Dates: start: 20201116
  6. IBRANCE [Suspect]
     Active Substance: PALBOCICLIB
     Dosage: 125 MG, UNK
     Dates: start: 20201230

REACTIONS (14)
  - Fatigue [Not Recovered/Not Resolved]
  - White blood cell count decreased [Unknown]
  - Dry mouth [Not Recovered/Not Resolved]
  - Somnolence [Unknown]
  - Diarrhoea [Recovered/Resolved]
  - Weight decreased [Unknown]
  - Alopecia [Unknown]
  - Arthralgia [Not Recovered/Not Resolved]
  - Dry skin [Unknown]
  - Dry throat [Unknown]
  - Decreased appetite [Not Recovered/Not Resolved]
  - Stomatitis [Recovered/Resolved]
  - Nausea [Recovered/Resolved]
  - Dysgeusia [Not Recovered/Not Resolved]

NARRATIVE: CASE EVENT DATE: 2020
